FAERS Safety Report 8843752 (Version 2)
Quarter: 2014Q1

REPORT INFORMATION
  Report Type: Report from Study
  Country: CA (occurrence: CA)
  Receive Date: 20121017
  Receipt Date: 20140131
  Transmission Date: 20141002
  Serious: Yes (Hospitalization)
  Sender: FDA-Public Use
  Company Number: CA-AMGEN-CANCT2012065371

PATIENT
  Age: 71 Year
  Sex: Female
  Weight: 64 kg

DRUGS (17)
  1. ETANERCEPT [Suspect]
     Indication: RHEUMATOID ARTHRITIS
     Dosage: 25 MG, 2 TIMES/WK
     Route: 058
     Dates: start: 20031104, end: 20120621
  2. METHOTREXATE SODIUM [Concomitant]
     Indication: RHEUMATOID ARTHRITIS
     Dosage: 25 MG, WEEKLY
     Route: 058
     Dates: start: 20020226
  3. NEXIUM                             /01479302/ [Concomitant]
     Indication: PROPHYLAXIS
     Dosage: 40 MG, 1X/DAY
     Route: 048
     Dates: start: 20110901, end: 20120621
  4. FOLIC ACID [Concomitant]
     Indication: RHEUMATOID ARTHRITIS
     Dosage: 5 MG, 1X/DAY
     Route: 048
     Dates: start: 20020226
  5. TYLENOL ARTHRITIS [Concomitant]
     Indication: RHEUMATOID ARTHRITIS
     Dosage: 1300 MG, AS NEEDED
     Route: 048
     Dates: start: 2008
  6. ACTONEL [Concomitant]
     Indication: PROPHYLAXIS
     Dosage: 150 MG, MONTHLY
     Route: 048
     Dates: start: 2003
  7. ELTROXIN [Concomitant]
     Indication: HYPOTHYROIDISM
     Dosage: 0.05 MG, 1X/DAY
     Route: 048
     Dates: start: 199101
  8. COZAAR [Concomitant]
     Indication: HYPERTENSION
     Dosage: 100 MG, 1X/DAY
     Route: 048
     Dates: start: 2005
  9. HYDROCHLOROTHIAZIDE [Concomitant]
     Indication: HYPERTENSION
     Dosage: 12.5 MG, 1X/DAY
     Route: 048
     Dates: start: 2003
  10. CALCIUM [Concomitant]
     Indication: PROPHYLAXIS
     Dosage: 1200 MG, 1X/DAY
     Route: 048
     Dates: start: 199802
  11. VITAMIN D                          /00107901/ [Concomitant]
     Indication: PROPHYLAXIS
     Dosage: 1000 IU, 1X/DAY
     Route: 048
     Dates: start: 200512
  12. MAALOX                             /00082501/ [Concomitant]
     Indication: DYSPEPSIA
     Dosage: 1 TABLESPOON, AS NEEDED
     Route: 048
     Dates: start: 20110915
  13. PREDNISONE [Concomitant]
     Indication: INTERSTITIAL LUNG DISEASE
     Dosage: 20 MG, UNK
     Route: 048
     Dates: start: 20120719, end: 20120723
  14. PREDNISONE [Concomitant]
     Dosage: 10 MG
     Route: 048
     Dates: start: 20120729
  15. CELECOXIB [Concomitant]
     Indication: RHEUMATOID ARTHRITIS
     Dosage: THRICE DAILY
     Route: 048
     Dates: start: 20110901, end: 20120621
  16. IBUPROFEN [Concomitant]
     Indication: RHEUMATOID ARTHRITIS
     Dosage: THRICE DAILY
     Route: 048
     Dates: start: 20110901, end: 20120621
  17. NAPROXEN [Concomitant]
     Indication: RHEUMATOID ARTHRITIS
     Dosage: THRICE DAILY
     Route: 048
     Dates: start: 20110901, end: 20120621

REACTIONS (1)
  - B-cell lymphoma [Recovered/Resolved]
